FAERS Safety Report 5560237-5 (Version None)
Quarter: 2007Q4

REPORT INFORMATION
  Report Type: 
  Country: None (occurrence: None)
  Receive Date: 20071214
  Receipt Date: 20071031
  Transmission Date: 20080405
  Serious: No
  Sender: FDA-Public Use
  Company Number: US-ABBOTT-07P-163-0423332-00

PATIENT
  Sex: Female
  Weight: 77.18 kg

DRUGS (6)
  1. HUMIRA [Suspect]
     Indication: RHEUMATOID ARTHRITIS
     Dosage: PEN
     Route: 058
     Dates: end: 20071004
  2. HUMIRA [Suspect]
     Route: 058
     Dates: start: 20050101
  3. ENALAPRIL MALEATE [Concomitant]
     Indication: HYPERTENSION
     Route: 048
  4. ESTROGENS CONJUGATED [Concomitant]
     Indication: HORMONE REPLACEMENT THERAPY
     Route: 048
  5. CELECOXIB [Concomitant]
     Indication: PAIN
     Route: 048
  6. CELECOXIB [Concomitant]
     Indication: INFLAMMATION

REACTIONS (9)
  - CHILLS [None]
  - DYSPNOEA [None]
  - HERPES ZOSTER [None]
  - PAIN IN EXTREMITY [None]
  - PLEURITIC PAIN [None]
  - PYREXIA [None]
  - RASH [None]
  - RHEUMATOID ARTHRITIS [None]
  - VAGINAL INFECTION [None]
